FAERS Safety Report 13610391 (Version 1)
Quarter: 2017Q2

REPORT INFORMATION
  Report Type: Spontaneous
  Country: US (occurrence: US)
  Receive Date: 20170602
  Receipt Date: 20170602
  Transmission Date: 20170830
  Serious: No
  Sender: FDA-Public Use
  Company Number: None

PATIENT
  Age: 37 Year
  Sex: Female

DRUGS (1)
  1. COSENTYX [Suspect]
     Active Substance: SECUKINUMAB
     Indication: PRODUCT USED FOR UNKNOWN INDICATION
     Dosage: 150MG EVERY 28 DAYS SUBCUTANEOUS INJECTION
     Route: 058
     Dates: start: 20170322

REACTIONS (2)
  - Glossodynia [None]
  - Hypersensitivity [None]

NARRATIVE: CASE EVENT DATE: 20170322
